FAERS Safety Report 7785554-X (Version None)
Quarter: 2011Q3

REPORT INFORMATION
  Report Type: 
  Country: None (occurrence: None)
  Receive Date: 20110929
  Receipt Date: 20110920
  Transmission Date: 20111222
  Serious: Yes (Death, Other)
  Sender: FDA-Public Use
  Company Number: GB-JNJFOC-20110910738

PATIENT

DRUGS (10)
  1. CLADRIBINE [Suspect]
     Route: 065
  2. PREDNISOLONE [Suspect]
     Indication: LANGERHANS' CELL HISTIOCYTOSIS
     Route: 065
  3. CYTARABINE [Suspect]
     Indication: LANGERHANS' CELL HISTIOCYTOSIS
     Route: 065
  4. CLADRIBINE [Suspect]
     Indication: LANGERHANS' CELL HISTIOCYTOSIS
     Route: 065
  5. PREDNISOLONE [Suspect]
     Route: 065
  6. ETOPOSIDE [Suspect]
     Indication: LANGERHANS' CELL HISTIOCYTOSIS
     Route: 065
  7. VINBLASTINE SULFATE [Suspect]
     Indication: LANGERHANS' CELL HISTIOCYTOSIS
     Route: 065
  8. VINBLASTINE SULFATE [Suspect]
     Route: 065
  9. ETOPOSIDE [Suspect]
     Route: 065
  10. CYTARABINE [Suspect]
     Route: 065

REACTIONS (3)
  - ASPERGILLOSIS [None]
  - SEPSIS [None]
  - PANCYTOPENIA [None]
